FAERS Safety Report 5041778-6 (Version None)
Quarter: 2006Q2

REPORT INFORMATION
  Report Type: 
  Country: None (occurrence: None)
  Receive Date: 20060630
  Receipt Date: 20060615
  Transmission Date: 20061013
  Serious: No
  Sender: FDA-Public Use
  Company Number: 200614143BWH

PATIENT
  Sex: Male

DRUGS (2)
  1. AVELOX [Suspect]
     Indication: LUNG INFECTION
     Dosage: 400 MG, QD, ORAL
     Route: 048
     Dates: start: 20060605
  2. ASPIRIN TAB [Suspect]
     Dosage: 81 MG, QD, ORAL
     Route: 048
     Dates: end: 20060611

REACTIONS (3)
  - ANAL DISCOMFORT [None]
  - GASTROINTESTINAL HAEMORRHAGE [None]
  - RECTAL HAEMORRHAGE [None]
